FAERS Safety Report 7809416-4 (Version None)
Quarter: 2011Q4

REPORT INFORMATION
  Report Type: 
  Country: None (occurrence: None)
  Receive Date: 20111012
  Receipt Date: 20111006
  Transmission Date: 20120403
  Serious: Yes (Other)
  Sender: FDA-Public Use
  Company Number: US-JNJFOC-20110807770

PATIENT
  Sex: Female
  Weight: 49.9 kg

DRUGS (7)
  1. DURAGESIC-100 [Suspect]
     Route: 062
  2. KLONOPIN [Concomitant]
     Indication: SLEEP DISORDER THERAPY
     Dosage: AT BEDTIME
     Route: 048
  3. DURAGESIC-100 [Suspect]
     Indication: PAIN
     Route: 062
  4. DURAGESIC-100 [Suspect]
     Route: 062
     Dates: start: 20090101
  5. MORPHINE [Concomitant]
     Indication: PAIN
     Route: 048
  6. DURAGESIC-100 [Suspect]
     Route: 062
     Dates: start: 20090101, end: 20110810
  7. DURAGESIC-100 [Suspect]
     Route: 062
     Dates: start: 20090101

REACTIONS (7)
  - SUICIDAL IDEATION [None]
  - CRYING [None]
  - EXPIRED DRUG ADMINISTERED [None]
  - DRUG INEFFECTIVE [None]
  - ACTIVITIES OF DAILY LIVING IMPAIRED [None]
  - ANXIETY [None]
  - FEELING ABNORMAL [None]
